FAERS Safety Report 5451347-1 (Version None)
Quarter: 2007Q3

REPORT INFORMATION
  Report Type: 
  Country: None (occurrence: None)
  Receive Date: 20070913
  Receipt Date: 20070911
  Transmission Date: 20080115
  Serious: Yes (Hospitalization, Other)
  Sender: FDA-Public Use
  Company Number: PT-ASTRAZENECA-2007AC01713

PATIENT
  Age: 57 Year
  Sex: Female

DRUGS (2)
  1. ZOLMITRIPTAN [Suspect]
     Indication: MIGRAINE
  2. ALPRAZOLAM [Concomitant]
     Indication: MIGRAINE

REACTIONS (2)
  - COLITIS ISCHAEMIC [None]
  - OVERDOSE [None]
